FAERS Safety Report 9276020 (Version 1)
Quarter: 2013Q2

REPORT INFORMATION
  Report Type: Spontaneous
  Country: US (occurrence: None)
  Receive Date: 20130502
  Receipt Date: 20130502
  Transmission Date: 20140414
  Serious: Yes (Hospitalization)
  Sender: FDA-Public Use
  Company Number: None

PATIENT
  Age: 71 Year
  Sex: Female
  Weight: 66 kg

DRUGS (2)
  1. REVLIMID [Suspect]
     Indication: ACUTE MYELOID LEUKAEMIA
     Dosage: 50MG, DAILY 1-28, ORAL
     Route: 048
     Dates: start: 20130219
  2. VIDAZA [Suspect]
     Indication: ACUTE MYELOID LEUKAEMIA
     Dosage: 131MG, DAILY 1-7, IV
     Route: 042
     Dates: start: 20130219

REACTIONS (3)
  - Headache [None]
  - Confusional state [None]
  - Haemorrhage intracranial [None]
